FAERS Safety Report 5490916-X (Version None)
Quarter: 2007Q4

REPORT INFORMATION
  Report Type: 
  Country: None (occurrence: None)
  Receive Date: 20071019
  Receipt Date: 20071009
  Transmission Date: 20080405
  Serious: Yes (Hospitalization)
  Sender: FDA-Public Use
  Company Number: US-AMGEN-US247357

PATIENT
  Sex: Male
  Weight: 116 kg

DRUGS (12)
  1. PANITUMUMAB [Suspect]
     Indication: COLORECTAL CANCER
     Route: 042
     Dates: start: 20071002, end: 20071002
  2. IRINOTECAN HCL [Suspect]
     Indication: COLORECTAL CANCER
     Route: 042
     Dates: start: 20071002, end: 20071002
  3. FLUOROURACIL [Suspect]
     Indication: COLORECTAL CANCER
     Route: 040
     Dates: start: 20071002, end: 20071002
  4. FLUOROURACIL [Concomitant]
     Route: 042
     Dates: start: 20071003, end: 20071005
  5. ZETIA [Concomitant]
  6. CRESTOR [Concomitant]
  7. IMDUR [Concomitant]
  8. ASPIRIN [Concomitant]
  9. FERROUS SULFATE TAB [Concomitant]
  10. TOPROL-XL [Concomitant]
  11. GLYBURIDE [Concomitant]
  12. SINGULAIR [Concomitant]

REACTIONS (1)
  - HYPERHIDROSIS [None]
